FAERS Safety Report 12530022 (Version 1)
Quarter: 2016Q3

REPORT INFORMATION
  Report Type: Spontaneous
  Country: US (occurrence: None)
  Receive Date: 20160705
  Receipt Date: 20160705
  Transmission Date: 20161109
  Serious: Yes (Other)
  Sender: FDA-Public Use
  Company Number: None

PATIENT
  Age: 57 Year
  Sex: Male
  Weight: 70.31 kg

DRUGS (2)
  1. CHANTIX [Suspect]
     Active Substance: VARENICLINE TARTRATE
     Indication: SMOKING CESSATION THERAPY
     Dates: start: 20160401, end: 20160625
  2. MULTI VITAMINS [Concomitant]
     Active Substance: VITAMINS

REACTIONS (4)
  - Lethargy [None]
  - Drug withdrawal syndrome [None]
  - Depression [None]
  - Alcohol abuse [None]

NARRATIVE: CASE EVENT DATE: 20160701
